FAERS Safety Report 23133588 (Version 1)
Quarter: 2023Q4

REPORT INFORMATION
  Report Type: Spontaneous
  Country: TR (occurrence: TR)
  Receive Date: 20231101
  Receipt Date: 20231101
  Transmission Date: 20240109
  Serious: Yes (Other)
  Sender: FDA-Public Use
  Company Number: TR-AMGEN-TURSP2023191907

PATIENT
  Age: 15 Year
  Sex: Female

DRUGS (7)
  1. FILGRASTIM [Suspect]
     Active Substance: FILGRASTIM
     Indication: Neutrophil count decreased
     Dosage: UNK, INTERMITTENT
     Route: 065
  2. BUSULFAN [Concomitant]
     Active Substance: BUSULFAN
     Route: 065
  3. FLUDARABINE [Concomitant]
     Active Substance: FLUDARABINE PHOSPHATE
     Route: 065
  4. THYMOCYTE IMMUNE GLOBULIN NOS [Concomitant]
     Active Substance: THYMOCYTE IMMUNE GLOBULIN NOS
     Route: 065
  5. METHOTREXATE [Concomitant]
     Active Substance: METHOTREXATE
     Indication: Prophylaxis
     Dosage: FROM DAY 0 TO DAY +28
     Route: 065
  6. CYCLOSPORINE [Concomitant]
     Active Substance: CYCLOSPORINE
     Indication: Prophylaxis
     Dosage: FROM DAY 0 TO DAY +28
     Route: 065
  7. TACROLIMUS [Concomitant]
     Active Substance: TACROLIMUS
     Indication: Prophylaxis
     Dosage: FROM DAY +29
     Route: 065

REACTIONS (7)
  - Livedo reticularis [Unknown]
  - Blood immunoglobulin G decreased [Unknown]
  - Gene mutation [Unknown]
  - Immunodeficiency [Recovered/Resolved]
  - Cytopenia [Unknown]
  - Therapy non-responder [Unknown]
  - B-lymphocyte count decreased [Unknown]
